FAERS Safety Report 8899950 (Version 1)
Quarter: 2012Q4

REPORT INFORMATION
  Report Type: 
  Country: US (occurrence: US)
  Receive Date: 20121108
  Receipt Date: 20121108
  Transmission Date: 20130627
  Serious: No
  Sender: FDA-Public Use
  Company Number: US-AMGEN-USASP2012031613

PATIENT
  Sex: Male

DRUGS (9)
  1. ENBREL [Suspect]
     Indication: RHEUMATOID ARTHRITIS
     Dosage: 50 mg, qwk
     Dates: start: 201112
  2. METHOTREXATE [Concomitant]
  3. FOLIC ACID [Concomitant]
  4. VERAPAMIL [Concomitant]
  5. CELEBREX [Concomitant]
  6. ASPIRIN [Concomitant]
  7. CRESTOR [Concomitant]
  8. RAMIPRIL [Concomitant]
  9. MULTIVITAMIN                       /00097801/ [Concomitant]

REACTIONS (1)
  - Injection site pain [Unknown]
